FAERS Safety Report 10995039 (Version 2)
Quarter: 2015Q2

REPORT INFORMATION
  Report Type: Spontaneous
  Country: US (occurrence: US)
  Receive Date: 20150407
  Receipt Date: 20150622
  Transmission Date: 20150821
  Serious: Yes (Other)
  Sender: FDA-Public Use
  Company Number: US-GLAXOSMITHKLINE-US2015037468

PATIENT
  Age: 45 Year
  Sex: Female
  Weight: 93.4 kg

DRUGS (4)
  1. BENLYSTA [Suspect]
     Active Substance: BELIMUMAB
     Dosage: UNK
     Dates: start: 20150504
  2. TYLENOL [Concomitant]
     Active Substance: ACETAMINOPHEN
  3. BENLYSTA [Suspect]
     Active Substance: BELIMUMAB
     Indication: SYSTEMIC LUPUS ERYTHEMATOSUS
     Dosage: 920 MG, U
     Route: 042
     Dates: start: 20141222
  4. CLARITIN (NOS) [Concomitant]

REACTIONS (2)
  - Staphylococcal infection [Unknown]
  - Wound [Unknown]

NARRATIVE: CASE EVENT DATE: 20150312
